FAERS Safety Report 16558938 (Version 2)
Quarter: 2020Q1

REPORT INFORMATION
  Report Type: Spontaneous
  Country: NO (occurrence: NO)
  Receive Date: 20190711
  Receipt Date: 20200210
  Transmission Date: 20200409
  Serious: Yes (Hospitalization)
  Sender: FDA-Public Use
  Company Number: NO-JNJFOC-20190636378

PATIENT
  Sex: Female
  Weight: 90 kg

DRUGS (2)
  1. STELARA [Suspect]
     Active Substance: USTEKINUMAB
     Indication: PSORIASIS
     Route: 058
     Dates: start: 201301, end: 20181101
  2. METHOTREXATE. [Concomitant]
     Active Substance: METHOTREXATE

REACTIONS (2)
  - Breast cancer metastatic [Not Recovered/Not Resolved]
  - Decreased immune responsiveness [Unknown]
